FAERS Safety Report 5467528-7 (Version None)
Quarter: 2007Q3

REPORT INFORMATION
  Report Type: 
  Country: None (occurrence: None)
  Receive Date: 20070925
  Receipt Date: 20070921
  Transmission Date: 20080115
  Serious: No
  Sender: FDA-Public Use
  Company Number: US-BOEHRINGER INGELHEIM PHARMACEUTICALS, INC.-2007-BP-18552BP

PATIENT
  Age: 86 Year
  Sex: Female

DRUGS (8)
  1. MIRAPEX [Suspect]
     Indication: RESTLESS LEGS SYNDROME
     Route: 048
     Dates: start: 20000101
  2. VASOTEC [Concomitant]
     Indication: HYPERTENSION
  3. THYROID SUPPLEMENT [Concomitant]
     Indication: HYPOTHYROIDISM
  4. NORVASC [Concomitant]
     Indication: HYPERTENSION
  5. DOXEPIN HCL [Concomitant]
     Indication: DEPRESSION
     Dates: start: 19920101
  6. VICODIN [Concomitant]
  7. VIACTIV [Concomitant]
  8. PRILOSEC [Concomitant]

REACTIONS (1)
  - DENTAL CARIES [None]
